FAERS Safety Report 7241692-1 (Version None)
Quarter: 2011Q1

REPORT INFORMATION
  Report Type: 
  Country: None (occurrence: None)
  Receive Date: 20110124
  Receipt Date: 20110113
  Transmission Date: 20110831
  Serious: Yes (Other)
  Sender: FDA-Public Use
  Company Number: PHHY2010FR87635

PATIENT
  Sex: Male

DRUGS (7)
  1. SOMATULINE LA [Concomitant]
     Dosage: 120 MG ONE INJ EVERY 28 DAYS
  2. SANDOSTATIN [Suspect]
     Indication: ACROMEGALY
     Dosage: 500 MCG/1 ML, 2 INJECTIONS DAILY
     Route: 064
     Dates: start: 19981001
  3. PARLODEL [Suspect]
     Indication: ACROMEGALY
     Dosage: 5 MG DAILY
  4. CLOMID [Concomitant]
  5. SANDOSTATIN [Suspect]
     Dosage: MATERNAL DOSE: 500 MCG, 2 INJECTIONS DAILY UNTIL ONE WEEK OF PREGNANCY
     Route: 064
     Dates: start: 20081001
  6. SANDOSTATIN [Suspect]
     Dosage: 500 MCG/1 ML, THREE INJECTIONS DAILY UNTIL ONE-WEEK PREGNANCY
     Route: 064
  7. CHORIONIC GONADOTROPIN [Concomitant]

REACTIONS (2)
  - DRUG EXPOSURE DURING PREGNANCY [None]
  - PREMATURE BABY [None]
